FAERS Safety Report 14790395 (Version 3)
Quarter: 2021Q3

REPORT INFORMATION
  Report Type: Spontaneous
  Country: US (occurrence: US)
  Receive Date: 20180423
  Receipt Date: 20210720
  Transmission Date: 20211014
  Serious: Yes (Disabling, Other)
  Sender: FDA-Public Use
  Company Number: US-ASTRAZENECA-2018SE47753

PATIENT
  Age: 19250 Day
  Sex: Male
  Weight: 173.3 kg

DRUGS (40)
  1. PRILOSEC [Suspect]
     Active Substance: OMEPRAZOLE MAGNESIUM
     Route: 048
     Dates: start: 199503, end: 201612
  2. HCTZ [Concomitant]
     Active Substance: HYDROCHLOROTHIAZIDE
     Indication: OEDEMA
     Dates: start: 20041119, end: 20120827
  3. DOXYCYCLINE. [Concomitant]
     Active Substance: DOXYCYCLINE
     Indication: BACTERIAL INFECTION
     Dates: start: 20130213, end: 20130219
  4. RANITIDINE. [Concomitant]
     Active Substance: RANITIDINE
  5. PROTONIX [Suspect]
     Active Substance: PANTOPRAZOLE SODIUM
     Dosage: GENERIC?40 MG
     Route: 065
     Dates: start: 20170106, end: 20170206
  6. SMZ?TMP [Concomitant]
     Active Substance: SULFAMETHOXAZOLE\TRIMETHOPRIM
     Indication: BACTERIAL INFECTION
     Dates: start: 20030321, end: 20030331
  7. CIPROFLOXACIN. [Concomitant]
     Active Substance: CIPROFLOXACIN
     Indication: BACTERIAL INFECTION
     Dates: start: 20110706, end: 20110806
  8. SMZ?TMP [Concomitant]
     Active Substance: SULFAMETHOXAZOLE\TRIMETHOPRIM
     Indication: BACTERIAL INFECTION
     Dates: start: 20070207, end: 20070226
  9. CEPHALEXIN. [Concomitant]
     Active Substance: CEPHALEXIN
     Indication: BACTERIAL INFECTION
     Dates: start: 20031014, end: 20031103
  10. TUMS [Concomitant]
     Active Substance: CALCIUM CARBONATE
     Dates: start: 2001, end: 2003
  11. METOPROLOL. [Concomitant]
     Active Substance: METOPROLOL
  12. TRAMADOL. [Concomitant]
     Active Substance: TRAMADOL
  13. VERAPAMIL [Concomitant]
     Active Substance: VERAPAMIL HYDROCHLORIDE
  14. NEXIUM [Suspect]
     Active Substance: ESOMEPRAZOLE MAGNESIUM
     Route: 048
     Dates: start: 199503, end: 201612
  15. DEXILANT [Suspect]
     Active Substance: DEXLANSOPRAZOLE
     Route: 065
     Dates: start: 199503, end: 201612
  16. LISINOPRIL. [Concomitant]
     Active Substance: LISINOPRIL
     Indication: HYPERTENSION
     Dates: start: 20031215, end: 20170404
  17. FUROSEMIDE. [Concomitant]
     Active Substance: FUROSEMIDE
     Indication: OEDEMA
     Dates: start: 20050523, end: 20170411
  18. ACYCLOVIR. [Concomitant]
     Active Substance: ACYCLOVIR
     Indication: VIRAL INFECTION
     Dates: start: 20100602, end: 20100702
  19. AMPICILLIN [Concomitant]
     Active Substance: AMPICILLIN
  20. HYDROCHLOROT [Concomitant]
     Active Substance: HYDROCHLOROTHIAZIDE
  21. PRILOSEC OTC [Suspect]
     Active Substance: OMEPRAZOLE MAGNESIUM
     Indication: GASTROOESOPHAGEAL REFLUX DISEASE
     Route: 048
     Dates: start: 199503, end: 201612
  22. CEPHALEXIN. [Concomitant]
     Active Substance: CEPHALEXIN
     Indication: BACTERIAL INFECTION
     Dates: start: 20100316, end: 20100415
  23. DOXYCYCLINE. [Concomitant]
     Active Substance: DOXYCYCLINE
     Indication: BACTERIAL INFECTION
     Dates: start: 20150121, end: 20150220
  24. COREG [Concomitant]
     Active Substance: CARVEDILOL
     Indication: HYPERTENSION
  25. NEXIUM 24HR [Suspect]
     Active Substance: ESOMEPRAZOLE MAGNESIUM
     Indication: GASTROOESOPHAGEAL REFLUX DISEASE
     Route: 048
     Dates: start: 2014, end: 2017
  26. PREVACID [Suspect]
     Active Substance: LANSOPRAZOLE
     Route: 065
     Dates: start: 199503, end: 201612
  27. PREVACID 24 HR [Suspect]
     Active Substance: LANSOPRAZOLE
     Route: 065
     Dates: start: 199503, end: 201612
  28. PROTONIX [Suspect]
     Active Substance: PANTOPRAZOLE SODIUM
     Route: 065
     Dates: start: 199503, end: 201612
  29. TUMS [Concomitant]
     Active Substance: CALCIUM CARBONATE
     Dates: start: 2003
  30. CLONIDINE. [Concomitant]
     Active Substance: CLONIDINE
  31. METOPROLOL. [Concomitant]
     Active Substance: METOPROLOL
  32. NEXIUM 24HR [Suspect]
     Active Substance: ESOMEPRAZOLE MAGNESIUM
     Indication: GASTROOESOPHAGEAL REFLUX DISEASE
     Route: 048
     Dates: start: 199503, end: 201612
  33. ACYCLOVIR. [Concomitant]
     Active Substance: ACYCLOVIR
     Indication: VIRAL INFECTION
     Dates: start: 20110706, end: 20110806
  34. WARFARIN [Concomitant]
     Active Substance: WARFARIN
  35. IBUPROFEN. [Concomitant]
     Active Substance: IBUPROFEN
  36. METHIMAZOLE. [Concomitant]
     Active Substance: METHIMAZOLE
  37. PRILOSEC OTC [Suspect]
     Active Substance: OMEPRAZOLE MAGNESIUM
     Indication: GASTROOESOPHAGEAL REFLUX DISEASE
     Route: 048
     Dates: start: 2003, end: 2017
  38. BENADRYL [Concomitant]
     Active Substance: DIPHENHYDRAMINE HYDROCHLORIDE
     Indication: MULTIPLE ALLERGIES
     Dates: start: 2001
  39. PACERONE [Concomitant]
     Active Substance: AMIODARONE HYDROCHLORIDE
  40. KLOR?CON [Concomitant]
     Active Substance: POTASSIUM CHLORIDE

REACTIONS (5)
  - Acute kidney injury [Unknown]
  - End stage renal disease [Unknown]
  - Chronic kidney disease [Not Recovered/Not Resolved]
  - Nephrogenic anaemia [Unknown]
  - Renal failure [Unknown]

NARRATIVE: CASE EVENT DATE: 20170106
